FAERS Safety Report 15671326 (Version 3)
Quarter: 2019Q1

REPORT INFORMATION
  Report Type: Spontaneous
  Country: JP (occurrence: JP)
  Receive Date: 20181129
  Receipt Date: 20190102
  Transmission Date: 20190417
  Serious: Yes (Other)
  Sender: FDA-Public Use
  Company Number: JP-BAYER-2018-218512

PATIENT
  Age: 69 Year
  Sex: Female
  Weight: 60.7 kg

DRUGS (3)
  1. LANSOPRAZOLE. [Concomitant]
     Active Substance: LANSOPRAZOLE
     Indication: DUODENAL ULCER
     Dosage: DAILY DOSE 15 MG
     Route: 048
     Dates: start: 20160805, end: 20160818
  2. CLOPIDOGREL [Concomitant]
     Active Substance: CLOPIDOGREL BISULFATE
     Indication: ANGINA PECTORIS
     Dosage: DAILY DOSE 75 MG
     Route: 048
     Dates: start: 20160805, end: 20160812
  3. BAYASPIRIN 100 MG [Suspect]
     Active Substance: ASPIRIN
     Indication: ANGINA UNSTABLE
     Dosage: DAILY DOSE 100 MG
     Route: 048
     Dates: start: 20160805, end: 20160823

REACTIONS (1)
  - Leukopenia [Recovering/Resolving]

NARRATIVE: CASE EVENT DATE: 20160810
